FAERS Safety Report 11163756 (Version 3)
Quarter: 2016Q2

REPORT INFORMATION
  Report Type: Spontaneous
  Country: US (occurrence: US)
  Receive Date: 20150604
  Receipt Date: 20160420
  Transmission Date: 20160815
  Serious: Yes (Other)
  Sender: FDA-Public Use
  Company Number: US-AMGEN-USASP2015052558

PATIENT
  Age: 58 Year
  Sex: Female

DRUGS (15)
  1. ENBREL [Suspect]
     Active Substance: ETANERCEPT
     Dosage: UNK
     Route: 065
  2. LOVASTATIN. [Concomitant]
     Active Substance: LOVASTATIN
     Dosage: 40 MG, UNK
  3. METHOTREXATE [Concomitant]
     Active Substance: METHOTREXATE
     Dosage: 2.5 MG, UNK
  4. ASPIRIN                            /00002701/ [Concomitant]
     Active Substance: ASPIRIN
     Dosage: UNK
  5. ENBREL [Suspect]
     Active Substance: ETANERCEPT
     Indication: PRODUCT USED FOR UNKNOWN INDICATION
     Dosage: 50 MG, ONCE WEEKLY
     Route: 058
     Dates: start: 20140824
  6. ENBREL [Suspect]
     Active Substance: ETANERCEPT
     Dosage: UNK
     Route: 058
  7. CITALOPRAM [Concomitant]
     Active Substance: CITALOPRAM HYDROBROMIDE
     Dosage: 20 MG, UNK
  8. DICLOFENAC SODIUM. [Concomitant]
     Active Substance: DICLOFENAC SODIUM
     Dosage: UNK
  9. ISONIAZID. [Concomitant]
     Active Substance: ISONIAZID
     Dosage: 300 MG, UNK
  10. ACETAMINOPHEN\HYDROCODONE BITARTRATE [Concomitant]
     Active Substance: ACETAMINOPHEN\HYDROCODONE BITARTRATE
     Dosage: 7.5-325
  11. LOSARTAN. [Concomitant]
     Active Substance: LOSARTAN
     Dosage: 100 MG, UNK
  12. PANTOPRAZOLE [Concomitant]
     Active Substance: PANTOPRAZOLE SODIUM
     Dosage: 40 MG, UNK
  13. TRIAMTERENE AND HYDROCHLOROTHIAZIDE [Concomitant]
     Active Substance: HYDROCHLOROTHIAZIDE\TRIAMTERENE
     Dosage: 37.5-25 CAPSULE
  14. TRIAMTERENE AND HYDROCHLOROTHIAZIDE [Concomitant]
     Active Substance: HYDROCHLOROTHIAZIDE\TRIAMTERENE
     Dosage: 37.5-25 TABLET
  15. GABAPENTIN. [Concomitant]
     Active Substance: GABAPENTIN
     Dosage: UNK

REACTIONS (5)
  - Arthralgia [Not Recovered/Not Resolved]
  - Knee operation [Recovered/Resolved]
  - Knee arthroplasty [Not Recovered/Not Resolved]
  - Mouth swelling [Not Recovered/Not Resolved]
  - Muscle spasms [Not Recovered/Not Resolved]

NARRATIVE: CASE EVENT DATE: 201601
